FAERS Safety Report 14528401 (Version 1)
Quarter: 2018Q1

REPORT INFORMATION
  Report Type: Spontaneous
  Country: RU (occurrence: RU)
  Receive Date: 20180214
  Receipt Date: 20180214
  Transmission Date: 20180509
  Serious: Yes (Other)
  Sender: FDA-Public Use
  Company Number: RU-ASTRAZENECA-2018SE16930

PATIENT
  Age: 70 Year
  Sex: Male
  Weight: 92 kg

DRUGS (2)
  1. BRILINTA [Suspect]
     Active Substance: TICAGRELOR
     Indication: MYOCARDIAL INFARCTION
     Route: 048
     Dates: start: 20161020, end: 20171020
  2. BRILINTA [Suspect]
     Active Substance: TICAGRELOR
     Indication: MYOCARDIAL INFARCTION
     Route: 048
     Dates: start: 201710

REACTIONS (4)
  - Off label use [Unknown]
  - Contusion [Recovered/Resolved]
  - Product use in unapproved indication [Unknown]
  - Vascular stent thrombosis [Not Recovered/Not Resolved]

NARRATIVE: CASE EVENT DATE: 201610
